FAERS Safety Report 8832029 (Version 1)
Quarter: 2012Q4

REPORT INFORMATION
  Report Type: 
  Country: GB (occurrence: GB)
  Receive Date: 20121009
  Receipt Date: 20121009
  Transmission Date: 20130627
  Serious: Yes (Other)
  Sender: FDA-Public Use
  Company Number: GB-JNJFOC-20120103666

PATIENT
  Age: 17 Year
  Sex: Female
  Weight: 53.97 kg

DRUGS (5)
  1. NICOTINE [Suspect]
     Indication: EX-TOBACCO USER
     Dosage: six pieces a day
     Route: 048
     Dates: start: 20111215, end: 20111222
  2. DEPO-PROVERA [Concomitant]
     Indication: CONTRACEPTION
     Route: 058
     Dates: start: 201012
  3. IRON [Concomitant]
     Indication: PRODUCT USED FOR UNKNOWN INDICATION
     Route: 048
     Dates: start: 201111
  4. MULTIVITAMINS [Concomitant]
     Indication: PRODUCT USED FOR UNKNOWN INDICATION
     Route: 048
     Dates: start: 201111
  5. NIQUITIN [Concomitant]
     Indication: EX-TOBACCO USER
     Route: 062
     Dates: start: 20111209

REACTIONS (1)
  - Dyspnoea [Recovered/Resolved]
